FAERS Safety Report 16055876 (Version 1)
Quarter: 2019Q1

REPORT INFORMATION
  Report Type: Spontaneous
  Country: IT (occurrence: IT)
  Receive Date: 20190311
  Receipt Date: 20190311
  Transmission Date: 20190418
  Serious: Yes (Other)
  Sender: FDA-Public Use
  Company Number: IT-AUROBINDO-AUR-APL-2019-012160

PATIENT

DRUGS (2)
  1. QUETIAPINE. [Suspect]
     Active Substance: QUETIAPINE
     Indication: PSYCHOTHERAPY
     Dosage: 1 DOSAGE FORM, DAILY
     Route: 048
     Dates: start: 20181001, end: 20190205
  2. TRITTICO [Suspect]
     Active Substance: TRAZODONE HYDROCHLORIDE
     Indication: PSYCHOTHERAPY
     Dosage: 1 DOSAGE FORM, DAILY
     Route: 048
     Dates: start: 20181001, end: 20190205

REACTIONS (3)
  - Confusional state [Recovering/Resolving]
  - Agitation [Recovering/Resolving]
  - Nightmare [Recovering/Resolving]

NARRATIVE: CASE EVENT DATE: 20190205
